FAERS Safety Report 14717500 (Version 1)
Quarter: 2018Q2

REPORT INFORMATION
  Report Type: Spontaneous
  Country: US (occurrence: US)
  Receive Date: 20180404
  Receipt Date: 20180404
  Transmission Date: 20180711
  Serious: No
  Sender: FDA-Public Use
  Company Number: US-SA-2018SA006928

PATIENT
  Sex: Male

DRUGS (3)
  1. DUPIXENT [Suspect]
     Active Substance: DUPILUMAB
     Route: 058
     Dates: start: 2017, end: 2017
  2. DUPIXENT [Suspect]
     Active Substance: DUPILUMAB
     Route: 058
  3. DUPIXENT [Suspect]
     Active Substance: DUPILUMAB
     Route: 058

REACTIONS (3)
  - Ocular hyperaemia [Recovering/Resolving]
  - Product use issue [Unknown]
  - Conjunctivitis [Recovering/Resolving]
